FAERS Safety Report 23365372 (Version 1)
Quarter: 2024Q1

REPORT INFORMATION
  Report Type: Spontaneous
  Country: IT (occurrence: IT)
  Receive Date: 20240104
  Receipt Date: 20240104
  Transmission Date: 20240410
  Serious: Yes (Death, Other)
  Sender: FDA-Public Use
  Company Number: IT-002147023-NVSC2023IT277186

PATIENT
  Age: 61 Year
  Sex: Male

DRUGS (1)
  1. MIDOSTAURIN [Suspect]
     Active Substance: MIDOSTAURIN
     Indication: Mantle cell lymphoma
     Dosage: 50MILIGRAM, 2 PER 1 DAY
     Route: 065

REACTIONS (6)
  - Disease progression [Fatal]
  - Ascites [Unknown]
  - Pleural effusion [Unknown]
  - Confusional state [Unknown]
  - Metabolic acidosis [Unknown]
  - Product use in unapproved indication [Unknown]
